FAERS Safety Report 6685288-9 (Version None)
Quarter: 2010Q2

REPORT INFORMATION
  Report Type: 
  Country: None (occurrence: None)
  Receive Date: 20100416
  Receipt Date: 20100413
  Transmission Date: 20101027
  Serious: Yes (Disabling)
  Sender: FDA-Public Use
  Company Number: GB-MERCK-1002GBR00030

PATIENT
  Age: 66 Year
  Sex: Male
  Weight: 95 kg

DRUGS (5)
  1. JANUVIA [Suspect]
     Indication: DIABETES MELLITUS
     Route: 048
     Dates: start: 20080301
  2. METFORMIN [Concomitant]
     Indication: DIABETES MELLITUS
     Route: 065
     Dates: start: 20051207
  3. SIMVASTATIN [Concomitant]
     Route: 048
     Dates: start: 20070425
  4. RAMIPRIL [Concomitant]
     Indication: BLOOD PRESSURE
     Route: 065
     Dates: start: 20080723
  5. LACTULOSE [Concomitant]
     Route: 065
     Dates: start: 20070126

REACTIONS (3)
  - EMPHYSEMA [None]
  - GOUT [None]
  - NEUROLOGICAL SYMPTOM [None]
